FAERS Safety Report 9766194 (Version 2)
Quarter: 2013Q4

REPORT INFORMATION
  Report Type: Spontaneous
  Country: BR (occurrence: BR)
  Receive Date: 20131217
  Receipt Date: 20131220
  Transmission Date: 20140711
  Serious: Yes (Life-Threatening, Other)
  Sender: FDA-Public Use
  Company Number: BR-ABBVIE-13P-020-1179699-00

PATIENT
  Age: 36 Year
  Sex: Female
  Weight: 68 kg

DRUGS (20)
  1. DEPAKENE [Suspect]
     Indication: BIPOLAR DISORDER
     Dosage: 1 TABLET IN THE MORNING AND 1 AT NIGHT
     Route: 048
     Dates: start: 20050503
  2. DEPAKENE [Interacting]
     Indication: PERSONALITY DISORDER
  3. CLOMIPRAMINE [Interacting]
     Indication: BIPOLAR DISORDER
     Dosage: 1 TABLET AT NIGHT
     Route: 048
     Dates: start: 20131125
  4. CLOMIPRAMINE [Interacting]
     Indication: PERSONALITY DISORDER
  5. RIVOTRIL [Concomitant]
     Indication: SOMNOLENCE
     Dosage: 1 TABLET IN THE MORNING AND 1 AT NIGHT
     Route: 048
     Dates: start: 200505
  6. RIVOTRIL [Concomitant]
     Indication: BIPOLAR DISORDER
  7. RIVOTRIL [Concomitant]
     Indication: PERSONALITY DISORDER
  8. LITHIUM CARBONATE [Concomitant]
     Indication: BIPOLAR DISORDER
     Dosage: 1 TABLET IN THE MORNING AND 1 AT NIGHT
     Route: 048
     Dates: start: 20100130, end: 20110315
  9. LITHIUM CARBONATE [Concomitant]
     Indication: PERSONALITY DISORDER
  10. CHLORPROMAZINE HYDROCHLORIDE [Concomitant]
     Indication: BIPOLAR DISORDER
     Route: 048
     Dates: start: 2005
  11. TOPIRAMATE [Concomitant]
     Indication: BIPOLAR DISORDER
     Dosage: ONCE PER NIGHT
     Route: 048
     Dates: start: 200505
  12. TOPIRAMATE [Concomitant]
     Indication: PERSONALITY DISORDER
  13. HALDOL [Concomitant]
     Indication: BIPOLAR DISORDER
     Dosage: 1 IN THE MORNING AND 1 AT NIGHT
     Dates: start: 20050503, end: 2008
  14. HALDOL [Concomitant]
     Indication: PERSONALITY DISORDER
  15. SERTRALINE [Concomitant]
     Indication: BIPOLAR DISORDER
     Route: 048
     Dates: start: 2010
  16. SERTRALINE [Concomitant]
     Indication: PERSONALITY DISORDER
  17. BIPERIDEN [Concomitant]
     Indication: BIPOLAR DISORDER
     Route: 048
     Dates: start: 20100320, end: 20101225
  18. BIPERIDEN [Concomitant]
     Indication: PERSONALITY DISORDER
  19. PAROXETINE [Concomitant]
     Indication: ANXIETY
     Route: 048
     Dates: start: 20020108, end: 20121013
  20. PAROXETINE [Concomitant]
     Indication: PRODUCT USED FOR UNKNOWN INDICATION

REACTIONS (14)
  - Leiomyoma [Recovering/Resolving]
  - Psychotic disorder [Recovering/Resolving]
  - Anxiety [Recovering/Resolving]
  - Suicidal ideation [Unknown]
  - Off label use [Unknown]
  - Abdominal pain upper [Not Recovered/Not Resolved]
  - Nausea [Not Recovered/Not Resolved]
  - Polycystic ovaries [Recovering/Resolving]
  - Amenorrhoea [Recovered/Resolved]
  - Depression [Recovered/Resolved]
  - Decreased appetite [Recovered/Resolved]
  - Thirst decreased [Recovered/Resolved]
  - Somnolence [Recovered/Resolved]
  - Drug interaction [Unknown]
